FAERS Safety Report 17808494 (Version 1)
Quarter: 2020Q2

REPORT INFORMATION
  Report Type: Spontaneous
  Country: CN (occurrence: CN)
  Receive Date: 20200520
  Receipt Date: 20200520
  Transmission Date: 20200714
  Serious: Yes (Other)
  Sender: FDA-Public Use
  Company Number: CN-ROCHE-2602255

PATIENT
  Age: 43 Year
  Sex: Female

DRUGS (6)
  1. AVASTIN [Suspect]
     Active Substance: BEVACIZUMAB
     Indication: METASTASES TO LYMPH NODES
  2. OTERACIL POTASSIUM [Concomitant]
     Active Substance: OTERACIL POTASSIUM
     Indication: RECTAL CANCER
     Route: 048
     Dates: start: 20200331
  3. TEGAFUR [Concomitant]
     Active Substance: TEGAFUR
     Indication: METASTASES TO LYMPH NODES
  4. GIMERACIL [Concomitant]
     Active Substance: GIMERACIL
     Indication: RECTAL CANCER
     Route: 048
  5. AVASTIN [Suspect]
     Active Substance: BEVACIZUMAB
     Indication: RECTAL CANCER
     Route: 041
     Dates: start: 20200331
  6. TEGAFUR [Concomitant]
     Active Substance: TEGAFUR
     Indication: RECTAL CANCER
     Route: 048
     Dates: start: 20200331

REACTIONS (1)
  - Bone marrow failure [Unknown]

NARRATIVE: CASE EVENT DATE: 20200402
